FAERS Safety Report 7279102-0 (Version None)
Quarter: 2011Q1

REPORT INFORMATION
  Report Type: 
  Country: None (occurrence: None)
  Receive Date: 20110207
  Receipt Date: 20110203
  Transmission Date: 20110831
  Serious: Yes (Death)
  Sender: FDA-Public Use
  Company Number: PHHY2011US04293

PATIENT
  Sex: Female

DRUGS (5)
  1. VICODIN [Concomitant]
  2. SIMVASTATIN [Concomitant]
     Indication: HYPERLIPIDAEMIA
     Route: 048
  3. RECLAST [Suspect]
     Indication: OSTEOPOROSIS
     Dosage: 5MG YEARLY
     Route: 042
     Dates: start: 20100201
  4. CYMBALTA [Concomitant]
     Dosage: 20 MG
     Route: 048
  5. PREDNISONE [Concomitant]
     Dosage: 9.5 MG
     Route: 048

REACTIONS (3)
  - FEELING ABNORMAL [None]
  - ASTHENIA [None]
  - PNEUMONIA [None]
